FAERS Safety Report 4793699-1 (Version None)
Quarter: 2005Q4

REPORT INFORMATION
  Report Type: 
  Country: None (occurrence: None)
  Receive Date: 20051011
  Receipt Date: 20051003
  Transmission Date: 20060501
  Serious: Yes (Hospitalization)
  Sender: FDA-Public Use
  Company Number: US-JNJFOC-20051000806

PATIENT
  Age: 66 Year
  Sex: Male

DRUGS (1)
  1. DURAGESIC-100 [Suspect]
     Indication: CANCER PAIN
     Route: 062
     Dates: start: 19990101

REACTIONS (5)
  - ASTHENIA [None]
  - CHILLS [None]
  - DIZZINESS [None]
  - LABILE BLOOD PRESSURE [None]
  - PNEUMONIA [None]
